FAERS Safety Report 12793602 (Version 1)
Quarter: 2016Q3

REPORT INFORMATION
  Report Type: Spontaneous
  Country: US (occurrence: None)
  Receive Date: 20160929
  Receipt Date: 20160929
  Transmission Date: 20161109
  Serious: Yes (Hospitalization)
  Sender: FDA-Public Use
  Company Number: None

PATIENT
  Age: 50 Year
  Sex: Female
  Weight: 65.83 kg

DRUGS (17)
  1. CLONAZEPAM. [Concomitant]
     Active Substance: CLONAZEPAM
  2. FLUCONAZOLE. [Concomitant]
     Active Substance: FLUCONAZOLE
  3. TRAMADOL HCL [Concomitant]
     Active Substance: TRAMADOL HYDROCHLORIDE
  4. VESICARE [Concomitant]
     Active Substance: SOLIFENACIN SUCCINATE
  5. CLOTRIMAZOLE-BETAMETHASONE CRM [Concomitant]
  6. AMLODIPINE BESYLATE. [Concomitant]
     Active Substance: AMLODIPINE BESYLATE
  7. FLUOXETINE HCL [Concomitant]
     Active Substance: FLUOXETINE HYDROCHLORIDE
  8. BOTOX [Suspect]
     Active Substance: ONABOTULINUMTOXINA
     Indication: TORTICOLLIS
     Dosage: 400 UNITS EVERY 4 MONTHS INJECTED IN NECK MUSCLE FOR CERVICAL DYSTONIA
     Route: 030
     Dates: start: 2008, end: 20160809
  9. ALPRAZOLAM. [Concomitant]
     Active Substance: ALPRAZOLAM
  10. BENICAR [Concomitant]
     Active Substance: OLMESARTAN MEDOXOMIL
  11. BUSPIRONE HCL [Concomitant]
     Active Substance: BUSPIRONE HYDROCHLORIDE
  12. DIAZEPAM. [Concomitant]
     Active Substance: DIAZEPAM
  13. FUROSEMIDE. [Concomitant]
     Active Substance: FUROSEMIDE
  14. TIZANIDINE HCL [Concomitant]
     Active Substance: TIZANIDINE HYDROCHLORIDE
  15. MELOXICAM. [Concomitant]
     Active Substance: MELOXICAM
  16. POTASSIUM CL ER [Concomitant]
     Active Substance: POTASSIUM CHLORIDE
  17. BENICAR HCT [Concomitant]
     Active Substance: HYDROCHLOROTHIAZIDE\OLMESARTAN MEDOXOMIL

REACTIONS (8)
  - Cough [None]
  - Lip dry [None]
  - Dry mouth [None]
  - Sneezing [None]
  - Swelling face [None]
  - Rhinorrhoea [None]
  - Thirst [None]
  - Eye irritation [None]

NARRATIVE: CASE EVENT DATE: 201502
